FAERS Safety Report 11237511 (Version 2)
Quarter: 2015Q3

REPORT INFORMATION
  Report Type: Report from Study
  Country: US (occurrence: US)
  Receive Date: 20150703
  Receipt Date: 20150907
  Transmission Date: 20151125
  Serious: Yes (Other)
  Sender: FDA-Public Use
  Company Number: US-BIOGENIDEC-2014BI121128

PATIENT
  Age: 66 Year
  Sex: Female

DRUGS (2)
  1. TECFIDERA [Suspect]
     Active Substance: DIMETHYL FUMARATE
     Indication: MULTIPLE SCLEROSIS
     Dates: start: 20141111
  2. TECFIDERA [Suspect]
     Active Substance: DIMETHYL FUMARATE
     Indication: MULTIPLE SCLEROSIS
     Route: 048
     Dates: start: 20141110, end: 20150801

REACTIONS (10)
  - Chills [Recovered/Resolved]
  - Diarrhoea [Recovered/Resolved]
  - Decreased appetite [Not Recovered/Not Resolved]
  - Gastric disorder [Not Recovered/Not Resolved]
  - Blood iron decreased [Recovered/Resolved]
  - Nausea [Not Recovered/Not Resolved]
  - Internal haemorrhage [Recovered/Resolved]
  - Drug interaction [Recovered/Resolved]
  - Flushing [Recovered/Resolved]
  - Abdominal pain upper [Not Recovered/Not Resolved]

NARRATIVE: CASE EVENT DATE: 20141110
